FAERS Safety Report 4962939-8 (Version None)
Quarter: 2006Q2

REPORT INFORMATION
  Report Type: 
  Country: None (occurrence: None)
  Receive Date: 20060405
  Receipt Date: 20060216
  Transmission Date: 20061013
  Serious: Yes (Other)
  Sender: FDA-Public Use
  Company Number: FR-BRACCO-BRO-009867

PATIENT
  Sex: Female

DRUGS (1)
  1. MULTIHANCE [Suspect]
     Route: 042
     Dates: start: 20060131, end: 20060131

REACTIONS (2)
  - ERYTHEMA [None]
  - HYPERSENSITIVITY [None]
